FAERS Safety Report 7421800-X (Version None)
Quarter: 2011Q2

REPORT INFORMATION
  Report Type: 
  Country: None (occurrence: None)
  Receive Date: 20110418
  Receipt Date: 20110414
  Transmission Date: 20111010
  Serious: Yes (Hospitalization)
  Sender: FDA-Public Use
  Company Number: JP-ABBOTT-10P-087-0682403-00

PATIENT
  Sex: Male

DRUGS (5)
  1. ZERIT [Suspect]
     Dosage: 60 MG DAILY
     Route: 048
     Dates: start: 20090429
  2. TRUVADA [Suspect]
     Indication: HIV INFECTION
     Dosage: 1 DOSAGE FORM DAILY
     Route: 048
     Dates: start: 20090429
  3. KALETRA [Suspect]
     Indication: HIV INFECTION
     Dosage: 4 DOSAGE FORMS DAILY
     Route: 048
     Dates: start: 20061127
  4. KALETRA [Suspect]
     Indication: HIV INFECTION
     Dosage: 6 DOSAGE FORM
     Route: 048
     Dates: start: 20050401, end: 20061126
  5. ZERIT [Suspect]
     Indication: HIV INFECTION
     Dosage: 60 MG DAILY
     Route: 048
     Dates: start: 20050401, end: 20080101

REACTIONS (3)
  - HYPERLIPIDAEMIA [None]
  - SYPHILIS [None]
  - OESOPHAGEAL CANDIDIASIS [None]
